FAERS Safety Report 10344656 (Version 1)
Quarter: 2014Q3

REPORT INFORMATION
  Report Type: Spontaneous
  Country: US (occurrence: US)
  Receive Date: 20140728
  Receipt Date: 20140728
  Transmission Date: 20150326
  Serious: Yes (Other)
  Sender: FDA-Public Use
  Company Number: US-ACCORD-024969

PATIENT
  Sex: Female

DRUGS (1)
  1. ACCORD^S GLIMEPIRIDE [Suspect]
     Active Substance: GLIMEPIRIDE
     Indication: PRODUCT USED FOR UNKNOWN INDICATION

REACTIONS (2)
  - Bone pain [Unknown]
  - Fatigue [Unknown]
